FAERS Safety Report 11305804 (Version 5)
Quarter: 2015Q3

REPORT INFORMATION
  Report Type: Report from Study
  Country: LT (occurrence: LT)
  Receive Date: 20150723
  Receipt Date: 20150918
  Transmission Date: 20151125
  Serious: Yes (Death)
  Sender: FDA-Public Use
  Company Number: LT-ASTRAZENECA-2015SE67381

PATIENT
  Age: 26219 Day
  Sex: Female
  Weight: 120 kg

DRUGS (3)
  1. AZD2281 [Suspect]
     Active Substance: OLAPARIB
     Indication: OVARIAN CANCER
     Dosage: DOSE REDUCED
     Route: 048
     Dates: start: 20150708, end: 20150907
  2. AZD2281 [Suspect]
     Active Substance: OLAPARIB
     Indication: OVARIAN CANCER
     Dosage: DOSE REDUCED
     Route: 048
     Dates: start: 20150915
  3. AZD2281 [Suspect]
     Active Substance: OLAPARIB
     Indication: OVARIAN CANCER
     Route: 048
     Dates: start: 20150310, end: 20150708

REACTIONS (2)
  - Platelet count decreased [Fatal]
  - Anaemia [Fatal]

NARRATIVE: CASE EVENT DATE: 20150708
